FAERS Safety Report 18153814 (Version 1)
Quarter: 2020Q3

REPORT INFORMATION
  Report Type: Spontaneous
  Country: US (occurrence: US)
  Receive Date: 20200816
  Receipt Date: 20200816
  Transmission Date: 20201103
  Serious: Yes (Death, Hospitalization, Other)
  Sender: FDA-Public Use
  Company Number: NVSC2020US225627

PATIENT
  Age: 61 Year
  Sex: Male

DRUGS (5)
  1. PEMETREXED. [Suspect]
     Active Substance: PEMETREXED
     Indication: NON-SMALL CELL LUNG CANCER
     Dosage: 500 MG/M2, Q3W
     Route: 065
  2. CARBOPLATIN. [Suspect]
     Active Substance: CARBOPLATIN
     Indication: NON-SMALL CELL LUNG CANCER
     Dosage: 5 MG/ML, AREA UNDER THE CONCENTRATION?TIME CURVE, 5MG PER MILLILITER PER MINUTE
     Route: 065
  3. PEMBROLIZUMAB. [Suspect]
     Active Substance: PEMBROLIZUMAB
     Indication: NON-SMALL CELL LUNG CANCER
     Dosage: 200 MG
     Route: 065
  4. FOLIC ACID. [Concomitant]
     Active Substance: FOLIC ACID
     Indication: PRODUCT USED FOR UNKNOWN INDICATION
     Dosage: UNK
     Route: 065
  5. VITAMIN B12 [Concomitant]
     Active Substance: CYANOCOBALAMIN
     Indication: PRODUCT USED FOR UNKNOWN INDICATION
     Dosage: UNK
     Route: 065

REACTIONS (10)
  - Malignant neoplasm progression [Fatal]
  - Tachycardia [Unknown]
  - Non-small cell lung cancer [Fatal]
  - Hypoxia [Not Recovered/Not Resolved]
  - Tachypnoea [Unknown]
  - Product use in unapproved indication [Unknown]
  - Respiratory failure [Unknown]
  - Interstitial lung disease [Not Recovered/Not Resolved]
  - Dyspnoea [Fatal]
  - Chest pain [Fatal]
